FAERS Safety Report 8345424-5 (Version None)
Quarter: 2012Q2

REPORT INFORMATION
  Report Type: 
  Country: None (occurrence: None)
  Receive Date: 20120508
  Receipt Date: 20120423
  Transmission Date: 20120825
  Serious: No
  Sender: FDA-Public Use
  Company Number: US-ENDO PHARMACEUTICALS INC.-OPER20120563

PATIENT
  Sex: Male

DRUGS (2)
  1. OXYCODONE HCL 15MG [Concomitant]
     Indication: PAIN
     Dosage: 15 MG
     Route: 048
  2. OPANA ER [Suspect]
     Indication: PAIN
     Dosage: UNK
     Route: 048
     Dates: start: 20100101, end: 20120301

REACTIONS (1)
  - DRUG EFFECT DECREASED [None]
